FAERS Safety Report 9349869 (Version 2)
Quarter: 2013Q2

REPORT INFORMATION
  Report Type: Spontaneous
  Country: US (occurrence: None)
  Receive Date: 20130611
  Receipt Date: 20130625
  Transmission Date: 20140414
  Serious: Yes (Death, Hospitalization)
  Sender: FDA-Public Use
  Company Number: 2013US001648

PATIENT
  Age: 53 Year
  Sex: Male
  Weight: 82 kg

DRUGS (3)
  1. ICLUSIG [Suspect]
     Indication: CHRONIC MYELOID LEUKAEMIA
     Route: 048
     Dates: start: 20130226, end: 20130427
  2. CELEXA [Concomitant]
  3. ZANTAC (RANITIDINE HYDROCHLORIDE) [Concomitant]

REACTIONS (15)
  - Pancytopenia [None]
  - Malignant neoplasm progression [None]
  - Gastrointestinal haemorrhage [None]
  - Chronic myeloid leukaemia [None]
  - Renal failure [None]
  - Hypokalaemia [None]
  - Acidosis [None]
  - Platelet count decreased [None]
  - Disease progression [None]
  - Pericardial effusion [None]
  - Haematochezia [None]
  - Cardiac failure congestive [None]
  - Pleural effusion [None]
  - Asthenia [None]
  - Pain [None]
